FAERS Safety Report 18330258 (Version 1)
Quarter: 2020Q3

REPORT INFORMATION
  Report Type: Spontaneous
  Country: US (occurrence: US)
  Receive Date: 20200930
  Receipt Date: 20200930
  Transmission Date: 20201103
  Serious: Yes (Other)
  Sender: FDA-Public Use
  Company Number: None

PATIENT
  Age: 66 Year
  Sex: Female

DRUGS (6)
  1. NINLARO [Suspect]
     Active Substance: IXAZOMIB CITRATE
     Indication: PLASMA CELL MYELOMA
     Dosage: ?          OTHER FREQUENCY:1 Q 7 DAYS;?
     Route: 048
     Dates: start: 20190706
  2. ZOMETA 4MG/ML [Concomitant]
  3. TYLENOL 200 MG [Concomitant]
  4. ACYCLOVIR 400 MG [Concomitant]
     Active Substance: ACYCLOVIR
  5. MULTIVITAMIN [Concomitant]
     Active Substance: VITAMINS
  6. MELATONIN 10MG [Concomitant]

REACTIONS (1)
  - Thrombosis [None]

NARRATIVE: CASE EVENT DATE: 20200925
